FAERS Safety Report 5720383-X (Version None)
Quarter: 2008Q2

REPORT INFORMATION
  Report Type: 
  Country: None (occurrence: None)
  Receive Date: 20080423
  Receipt Date: 20070618
  Transmission Date: 20081010
  Serious: Yes (Other)
  Sender: FDA-Public Use
  Company Number: 241497

PATIENT
  Age: 63 Year
  Sex: Male

DRUGS (2)
  1. AVASTIN [Suspect]
     Indication: METASTASES TO LIVER
     Dosage: 7.5 MG/KG, Q2W, INTRAVENOUS
     Route: 042
  2. AVASTIN [Suspect]
     Indication: RECTAL CANCER METASTATIC
     Dosage: 7.5 MG/KG, Q2W, INTRAVENOUS
     Route: 042

REACTIONS (1)
  - FEMORAL ARTERY OCCLUSION [None]
